FAERS Safety Report 7067380-2 (Version None)
Quarter: 2010Q4

REPORT INFORMATION
  Report Type: 
  Country: None (occurrence: None)
  Receive Date: 20101028
  Receipt Date: 20101021
  Transmission Date: 20110411
  Serious: Yes (Other)
  Sender: FDA-Public Use
  Company Number: US-RB-015094-10

PATIENT
  Age: 29 Year
  Sex: Male

DRUGS (3)
  1. SUBOXONE [Suspect]
     Indication: PRODUCT USED FOR UNKNOWN INDICATION
     Dosage: UNKNOWN DOSING DETAILS
     Route: 065
  2. SUBOXONE [Suspect]
     Dosage: UNKNOWN DOSING DETAILS
     Route: 065
     Dates: start: 20100101
  3. SUBOXONE [Suspect]
     Indication: PRODUCT USED FOR UNKNOWN INDICATION
     Dosage: SUBOXONE SUBLINGUAL FILM - UNKNOWN DOSING DETAILS
     Route: 065
     Dates: start: 20100101, end: 20100101

REACTIONS (4)
  - CARDIAC DISORDER [None]
  - DYSPNOEA [None]
  - INFECTION [None]
  - PAIN IN EXTREMITY [None]
